FAERS Safety Report 5424586-3 (Version None)
Quarter: 2007Q3

REPORT INFORMATION
  Report Type: 
  Country: None (occurrence: None)
  Receive Date: 20070822
  Receipt Date: 20070808
  Transmission Date: 20080115
  Serious: No
  Sender: FDA-Public Use
  Company Number: TPA2007A01675

PATIENT
  Age: 64 Year
  Sex: Female

DRUGS (6)
  1. ACTOS [Suspect]
     Indication: DIABETES MELLITUS
     Dosage: 45 MG, 1 IN 1 D, PER ORAL
     Route: 048
     Dates: start: 20060101
  2. AMBIEN [Concomitant]
  3. GLIPIZIDE XL (GLIPIZIDE) [Concomitant]
  4. FOLIC ACID [Concomitant]
  5. EVISTA [Concomitant]
  6. METFORMIN HCL [Concomitant]

REACTIONS (1)
  - PHARMACEUTICAL PRODUCT COMPLAINT [None]
